FAERS Safety Report 8685968 (Version 2)
Quarter: 2013Q3

REPORT INFORMATION
  Report Type: Spontaneous
  Country: US (occurrence: US)
  Receive Date: 20120726
  Receipt Date: 20130920
  Transmission Date: 20140515
  Serious: No
  Sender: FDA-Public Use
  Company Number: US-ASTRAZENECA-2011SE55188

PATIENT
  Age: 64 Year
  Sex: Female

DRUGS (2)
  1. SEROQUEL [Suspect]
     Route: 048
  2. NEXIUM [Concomitant]
     Route: 048

REACTIONS (9)
  - Insomnia [Unknown]
  - Headache [Unknown]
  - Malaise [Unknown]
  - Abdominal discomfort [Unknown]
  - Feeling abnormal [Unknown]
  - Depression [Unknown]
  - Tremor [Unknown]
  - Incorrect dose administered [Unknown]
  - Drug dose omission [Unknown]
